FAERS Safety Report 7003093-0 (Version None)
Quarter: 2010Q3

REPORT INFORMATION
  Report Type: 
  Country: None (occurrence: None)
  Receive Date: 20100920
  Receipt Date: 20100413
  Transmission Date: 20110219
  Serious: No
  Sender: FDA-Public Use
  Company Number: US-ASTRAZENECA-2010SE16532

PATIENT
  Age: 31 Year
  Sex: Female
  Weight: 90.7 kg

DRUGS (14)
  1. SEROQUEL [Suspect]
     Indication: SCHIZOAFFECTIVE DISORDER
     Route: 048
     Dates: start: 20090701, end: 20100101
  2. SEROQUEL [Suspect]
     Indication: BIPOLAR DISORDER
     Route: 048
     Dates: start: 20090701, end: 20100101
  3. SEROQUEL [Suspect]
     Indication: EATING DISORDER
     Route: 048
     Dates: start: 20090701, end: 20100101
  4. SEROQUEL [Suspect]
     Route: 048
     Dates: start: 20090701
  5. SEROQUEL [Suspect]
     Route: 048
     Dates: start: 20090701
  6. SEROQUEL [Suspect]
     Route: 048
     Dates: start: 20090701
  7. SEROQUEL [Suspect]
     Dosage: 200 MG AT NIGHT AND 100 MG IN AFTERNOON AS NEED FOR ANXIETY
     Route: 048
     Dates: start: 20100101, end: 20100101
  8. SEROQUEL [Suspect]
     Dosage: 200 MG AT NIGHT AND 100 MG IN AFTERNOON AS NEED FOR ANXIETY
     Route: 048
     Dates: start: 20100101, end: 20100101
  9. SEROQUEL [Suspect]
     Dosage: 200 MG AT NIGHT AND 100 MG IN AFTERNOON AS NEED FOR ANXIETY
     Route: 048
     Dates: start: 20100101, end: 20100101
  10. SEROQUEL [Suspect]
     Route: 048
     Dates: start: 20100101
  11. SEROQUEL [Suspect]
     Route: 048
     Dates: start: 20100101
  12. SEROQUEL [Suspect]
     Route: 048
     Dates: start: 20100101
  13. AMBIEN [Concomitant]
     Indication: SLEEP DISORDER
  14. ABILIFY [Concomitant]

REACTIONS (7)
  - DRUG EXPOSURE DURING PREGNANCY [None]
  - DRUG INEFFECTIVE [None]
  - INSOMNIA [None]
  - NAUSEA [None]
  - SEDATION [None]
  - VOMITING [None]
  - WEIGHT INCREASED [None]
